FAERS Safety Report 13456123 (Version 8)
Quarter: 2018Q2

REPORT INFORMATION
  Report Type: Spontaneous
  Country: US (occurrence: US)
  Receive Date: 20170419
  Receipt Date: 20180516
  Transmission Date: 20180711
  Serious: Yes (Other)
  Sender: FDA-Public Use
  Company Number: US-ACORDA-ACO_136436_2017

PATIENT
  Age: 44 Year
  Sex: Female

DRUGS (5)
  1. TECFIDERA [Suspect]
     Active Substance: DIMETHYL FUMARATE
     Indication: MULTIPLE SCLEROSIS
     Dosage: UNK
     Route: 065
     Dates: start: 20130430, end: 20161007
  2. AMPYRA [Suspect]
     Active Substance: DALFAMPRIDINE
     Indication: GAIT DISTURBANCE
  3. AMPYRA [Suspect]
     Active Substance: DALFAMPRIDINE
     Indication: BALANCE DISORDER
  4. ZINBRYTA [Suspect]
     Active Substance: DACLIZUMAB
     Indication: RELAPSING-REMITTING MULTIPLE SCLEROSIS
     Dosage: 150 MG, EVERY 4 WEEKS
     Route: 058
     Dates: start: 20161220, end: 20180220
  5. AMPYRA [Suspect]
     Active Substance: DALFAMPRIDINE
     Indication: MULTIPLE SCLEROSIS
     Dosage: 10 MG, BID
     Route: 048
     Dates: end: 201703

REACTIONS (15)
  - Pain [Recovering/Resolving]
  - Eye disorder [Recovered/Resolved]
  - Gait disturbance [Recovered/Resolved]
  - Therapy cessation [Unknown]
  - Multiple sclerosis relapse [Not Recovered/Not Resolved]
  - Ankle fracture [Recovering/Resolving]
  - Drug ineffective [Unknown]
  - Vertigo [Recovered/Resolved]
  - Vertigo [Not Recovered/Not Resolved]
  - Off label use [Unknown]
  - Balance disorder [Recovered/Resolved]
  - Cerebral disorder [Not Recovered/Not Resolved]
  - Injection site reaction [Recovered/Resolved]
  - Fall [Recovering/Resolving]
  - Back pain [Recovered/Resolved]

NARRATIVE: CASE EVENT DATE: 2014
